FAERS Safety Report 19620289 (Version 1)
Quarter: 2021Q3

REPORT INFORMATION
  Report Type: Spontaneous
  Country: US (occurrence: US)
  Receive Date: 20210727
  Receipt Date: 20210727
  Transmission Date: 20211014
  Serious: Yes (Other)
  Sender: FDA-Public Use
  Company Number: None

PATIENT
  Age: 42 Year
  Sex: Male
  Weight: 85.5 kg

DRUGS (1)
  1. NIACIN ER GENERIC FOR NIASPAN ER [Suspect]
     Active Substance: NIACIN
     Indication: HYPERTRIGLYCERIDAEMIA
     Dosage: ?          QUANTITY:1 TABLET(S);?
     Route: 048
     Dates: start: 20210727, end: 20210727

REACTIONS (2)
  - Product substitution issue [None]
  - Flushing [None]

NARRATIVE: CASE EVENT DATE: 20210727
